FAERS Safety Report 6013758-5 (Version None)
Quarter: 2008Q4

REPORT INFORMATION
  Report Type: 
  Country: None (occurrence: None)
  Receive Date: 20081219
  Receipt Date: 20081210
  Transmission Date: 20090506
  Serious: Yes (Hospitalization)
  Sender: FDA-Public Use
  Company Number: B0549962A

PATIENT
  Age: 83 Year
  Sex: Female
  Weight: 71 kg

DRUGS (5)
  1. AUGMENTIN '125' [Suspect]
     Indication: ESCHERICHIA URINARY TRACT INFECTION
     Route: 048
     Dates: start: 20080905, end: 20080906
  2. NOROXIN [Concomitant]
     Indication: ESCHERICHIA URINARY TRACT INFECTION
     Route: 065
     Dates: start: 20080908
  3. CORTANCYL [Concomitant]
     Dosage: 9MG PER DAY
     Route: 065
  4. HEXAQUINE [Concomitant]
     Route: 065
  5. TAREG [Concomitant]
     Dosage: 1UNIT PER DAY
     Route: 065

REACTIONS (5)
  - DRUG RASH WITH EOSINOPHILIA AND SYSTEMIC SYMPTOMS [None]
  - FACE OEDEMA [None]
  - RASH [None]
  - RASH ERYTHEMATOUS [None]
  - RENAL FAILURE [None]
